FAERS Safety Report 5965161-1 (Version None)
Quarter: 2008Q4

REPORT INFORMATION
  Report Type: 
  Country: None (occurrence: None)
  Receive Date: 20081125
  Receipt Date: 20081111
  Transmission Date: 20090506
  Serious: Yes (Other)
  Sender: FDA-Public Use
  Company Number: US-KINGPHARMUSA00001-K200801287

PATIENT
  Age: 63 Year
  Sex: Female

DRUGS (7)
  1. TAPAZOLE [Suspect]
     Indication: TOXIC NODULAR GOITRE
     Dosage: UNK
  2. GABAPENTIN [Suspect]
     Dosage: UNK
  3. ANASTROZOLE [Suspect]
     Indication: BREAST CANCER
     Dosage: UNK
     Dates: start: 20060101
  4. LETROZOLE [Suspect]
     Indication: BREAST CANCER
     Dosage: UNK
  5. TRASTUZUMAB [Suspect]
     Indication: BREAST CANCER
     Dosage: UNK
  6. FULVESTRANT [Suspect]
     Indication: BREAST CANCER
     Dosage: UNK
  7. TAMOXIFEN [Suspect]
     Indication: BREAST CANCER
     Dosage: UNK

REACTIONS (14)
  - ARTHRALGIA [None]
  - BLADDER MASS [None]
  - BREAST CANCER STAGE IV [None]
  - BURNING SENSATION [None]
  - CONNECTIVE TISSUE DISORDER [None]
  - CUTANEOUS VASCULITIS [None]
  - CYSTITIS [None]
  - HEPATIC NEOPLASM [None]
  - PAIN OF SKIN [None]
  - PURPURA [None]
  - RASH ERYTHEMATOUS [None]
  - SKIN ULCER [None]
  - WEIGHT DECREASED [None]
  - WOUND DRAINAGE [None]
